FAERS Safety Report 23272939 (Version 1)
Quarter: 2023Q4

REPORT INFORMATION
  Report Type: Spontaneous
  Country: IT (occurrence: None)
  Receive Date: 20231207
  Receipt Date: 20231207
  Transmission Date: 20240110
  Serious: Yes (Other)
  Sender: FDA-Public Use
  Company Number: IT-ROCHE-3443665

PATIENT
  Age: 77 Year
  Sex: Female

DRUGS (1)
  1. ALECTINIB [Suspect]
     Active Substance: ALECTINIB
     Indication: Product used for unknown indication
     Route: 065
     Dates: start: 202308

REACTIONS (2)
  - Erosive oesophagitis [Unknown]
  - Haemoglobin decreased [Unknown]
